FAERS Safety Report 11803640 (Version 2)
Quarter: 2016Q1

REPORT INFORMATION
  Report Type: Spontaneous
  Country: US (occurrence: US)
  Receive Date: 20151204
  Receipt Date: 20160104
  Transmission Date: 20160525
  Serious: No
  Sender: FDA-Public Use
  Company Number: US-SHIRE-US201515537

PATIENT
  Age: 33 Year
  Sex: Female
  Weight: 63.49 kg

DRUGS (4)
  1. AMBIEN [Concomitant]
     Active Substance: ZOLPIDEM TARTRATE
     Indication: SLEEP DISORDER
     Dosage: 10 MG, 1X/DAY:QD
     Route: 048
     Dates: start: 201208
  2. VYVANSE [Suspect]
     Active Substance: LISDEXAMFETAMINE DIMESYLATE
     Indication: NARCOLEPSY
     Dosage: 70 MG, 1X/DAY:QD
     Route: 048
     Dates: start: 2013
  3. CLOMIPRAMINE [Concomitant]
     Active Substance: CLOMIPRAMINE
     Indication: CATAPLEXY
     Dosage: 50 MG, 1X/DAY:QD
     Route: 048
     Dates: start: 201208
  4. ZOLOFT [Concomitant]
     Active Substance: SERTRALINE HYDROCHLORIDE
     Indication: CATAPLEXY
     Dosage: 100 MG, 1X/DAY:QD
     Route: 048
     Dates: start: 201208

REACTIONS (3)
  - Product use issue [Not Recovered/Not Resolved]
  - Product quality issue [Unknown]
  - Drug ineffective [Not Recovered/Not Resolved]

NARRATIVE: CASE EVENT DATE: 2013
